FAERS Safety Report 8794792 (Version 2)
Quarter: 2015Q2

REPORT INFORMATION
  Report Type: Report from Study
  Country: US (occurrence: US)
  Receive Date: 20120917
  Receipt Date: 20150407
  Transmission Date: 20150821
  Serious: Yes (Death, Hospitalization)
  Sender: FDA-Public Use
  Company Number: US-ROCHE-1129188

PATIENT
  Age: 46 Year
  Sex: Female

DRUGS (13)
  1. TAXOTERE [Concomitant]
     Active Substance: DOCETAXEL
  2. RESTORIL [Concomitant]
     Active Substance: TEMAZEPAM
     Dosage: BEDTIME
     Route: 065
  3. XELODA [Suspect]
     Active Substance: CAPECITABINE
     Indication: PRODUCT USED FOR UNKNOWN INDICATION
     Route: 065
  4. AVASTIN [Suspect]
     Active Substance: BEVACIZUMAB
     Indication: BREAST CANCER
     Route: 042
     Dates: start: 20080610
  5. NAVELBINE [Concomitant]
     Active Substance: VINORELBINE TARTRATE
  6. COMPAZINE [Concomitant]
     Active Substance: PROCHLORPERAZINE MALEATE
  7. VITAMIN K [Concomitant]
     Active Substance: PHYTONADIONE
  8. LEVAQUIN [Concomitant]
     Active Substance: LEVOFLOXACIN
  9. TAXOL [Concomitant]
     Active Substance: PACLITAXEL
  10. GEMCITABINE [Concomitant]
     Active Substance: GEMCITABINE\GEMCITABINE HYDROCHLORIDE
  11. BENICAR [Concomitant]
     Active Substance: OLMESARTAN MEDOXOMIL
     Route: 065
  12. HYDROCHLOROTHIAZIDE. [Concomitant]
     Active Substance: HYDROCHLOROTHIAZIDE
     Route: 065
  13. COUMADIN [Concomitant]
     Active Substance: WARFARIN SODIUM
     Dosage: BEDTIME
     Route: 065

REACTIONS (31)
  - Gingival bleeding [Unknown]
  - Hypoxia [Unknown]
  - Haemorrhagic diathesis [Unknown]
  - Poor quality sleep [Unknown]
  - Swelling [Unknown]
  - Haemorrhage [Unknown]
  - Thrombocytopenia [Unknown]
  - Dyspnoea exertional [Unknown]
  - Back pain [Unknown]
  - Nausea [Unknown]
  - Hypertension [Unknown]
  - Pyrexia [Unknown]
  - Hypotension [Unknown]
  - Dysuria [Unknown]
  - Vomiting [Unknown]
  - Diarrhoea [Unknown]
  - Hypokalaemia [Unknown]
  - Gastrointestinal toxicity [Unknown]
  - Emotional distress [Unknown]
  - Death [Fatal]
  - Hypomagnesaemia [Unknown]
  - Decreased appetite [Unknown]
  - Gastrooesophageal reflux disease [Unknown]
  - Malaise [Unknown]
  - Muscle spasticity [Unknown]
  - Abdominal pain [Unknown]
  - Coagulopathy [Unknown]
  - Urinary tract infection [Unknown]
  - Mucosal inflammation [Unknown]
  - Asthenia [Unknown]
  - Fatigue [Unknown]

NARRATIVE: CASE EVENT DATE: 20081210
